FAERS Safety Report 18392781 (Version 2)
Quarter: 2020Q4

REPORT INFORMATION
  Report Type: Spontaneous
  Country: US (occurrence: US)
  Receive Date: 20201016
  Receipt Date: 20201222
  Transmission Date: 20210114
  Serious: Yes (Death, Hospitalization, Disabling, Other)
  Sender: FDA-Public Use
  Company Number: US-009507513-2010USA005154

PATIENT
  Sex: Female
  Weight: 103.4 kg

DRUGS (2)
  1. JANUVIA [Suspect]
     Active Substance: SITAGLIPTIN PHOSPHATE
     Dosage: 100 MILLIGRAM, ONCE DAILY/EVERY DAY
     Route: 048
     Dates: start: 20120215, end: 20130910
  2. BYDUREON [Suspect]
     Active Substance: EXENATIDE
     Dosage: 2 MILLIGRAM, EVERY SEVEN DAYS; FORMULATION: 2 MG SUBCUTANEOUS SUSPENSION RECONSTITUTED, PREFILLED SY
     Dates: start: 20130606, end: 20130808

REACTIONS (58)
  - Dilatation intrahepatic duct acquired [Recovered/Resolved]
  - Cholangitis [Unknown]
  - Blood glucose fluctuation [Unknown]
  - Uterine leiomyoma [Unknown]
  - Gallbladder oedema [Unknown]
  - Essential hypertension [Unknown]
  - Photophobia [Unknown]
  - Appendix disorder [Unknown]
  - Back disorder [Unknown]
  - Body temperature abnormal [Unknown]
  - Stress [Unknown]
  - Renal mass [Unknown]
  - Magnetic resonance imaging abdominal abnormal [Unknown]
  - Gastritis [Unknown]
  - Appendicitis [Unknown]
  - Depression [Unknown]
  - Blood glucose increased [Unknown]
  - Transaminases increased [Unknown]
  - Nausea [Unknown]
  - Back pain [Unknown]
  - Pancreatic carcinoma metastatic [Fatal]
  - Gallbladder enlargement [Unknown]
  - Pneumobilia [Unknown]
  - Hyperaemia [Unknown]
  - Blood pressure abnormal [Unknown]
  - Abdominal pain upper [Unknown]
  - Cholecystitis [Unknown]
  - Gallbladder disorder [Recovered/Resolved]
  - Sleep apnoea syndrome [Unknown]
  - Diabetic gastroparesis [Unknown]
  - Faecal volume increased [Unknown]
  - Sleep disorder [Unknown]
  - Aspartate aminotransferase abnormal [Unknown]
  - Constipation [Unknown]
  - Vomiting [Unknown]
  - Back pain [Unknown]
  - Abdominal pain upper [Unknown]
  - Type V hyperlipidaemia [Unknown]
  - Gastric ulcer [Recovering/Resolving]
  - Bile duct stenosis [Unknown]
  - Flushing [Unknown]
  - Ill-defined disorder [Unknown]
  - Blood alkaline phosphatase abnormal [Unknown]
  - Blood bilirubin abnormal [Recovered/Resolved]
  - Decreased appetite [Unknown]
  - Arthralgia [Unknown]
  - Vomiting [Recovered/Resolved]
  - Metastases to lymph nodes [Unknown]
  - Neuropathy peripheral [Unknown]
  - Pancreatitis [Unknown]
  - Diabetic neuropathy [Unknown]
  - Decubitus ulcer [Unknown]
  - Blood lactate dehydrogenase abnormal [Unknown]
  - Alanine aminotransferase abnormal [Unknown]
  - Pain in extremity [Unknown]
  - Headache [Unknown]
  - Back pain [Unknown]
  - Abdominal pain upper [Unknown]

NARRATIVE: CASE EVENT DATE: 20130719
